FAERS Safety Report 10153961 (Version 1)
Quarter: 2014Q2

REPORT INFORMATION
  Report Type: Spontaneous
  Country: US (occurrence: US)
  Receive Date: 20140506
  Receipt Date: 20140506
  Transmission Date: 20141212
  Serious: No
  Sender: FDA-Public Use
  Company Number: US-SHIRE-US201401672

PATIENT
  Age: 85 Year
  Sex: Female

DRUGS (1)
  1. LIALDA [Suspect]
     Indication: PRODUCT USED FOR UNKNOWN INDICATION
     Dosage: 1.2 G (ONE TABLET), 1X/DAY:QD
     Route: 048
     Dates: start: 201302

REACTIONS (1)
  - Faeces discoloured [Unknown]
